FAERS Safety Report 5369864-1 (Version None)
Quarter: 2007Q2

REPORT INFORMATION
  Report Type: 
  Country: None (occurrence: None)
  Receive Date: 20070621
  Receipt Date: 20070611
  Transmission Date: 20071010
  Serious: Yes (Death)
  Sender: FDA-Public Use
  Company Number: 2007AL002382

PATIENT
  Age: 72 Year
  Sex: Female

DRUGS (4)
  1. DIGOXIN [Suspect]
  2. VERAPAMIL [Concomitant]
  3. METOLAZONE [Concomitant]
  4. WARFARIN SODIUM [Concomitant]

REACTIONS (10)
  - ARRHYTHMIA [None]
  - CARDIAC FAILURE CONGESTIVE [None]
  - DECREASED APPETITE [None]
  - NAUSEA [None]
  - RENAL FAILURE ACUTE [None]
  - SEPSIS [None]
  - THERAPEUTIC AGENT TOXICITY [None]
  - VENTRICULAR TACHYCARDIA [None]
  - VISUAL DISTURBANCE [None]
  - VOMITING [None]
